FAERS Safety Report 23105327 (Version 1)
Quarter: 2023Q4

REPORT INFORMATION
  Report Type: Spontaneous
  Country: CN (occurrence: CN)
  Receive Date: 20231025
  Receipt Date: 20231025
  Transmission Date: 20240109
  Serious: Yes (Hospitalization)
  Sender: FDA-Public Use
  Company Number: CN-Eisai Medical Research-EC-2023-149661

PATIENT
  Age: 73 Year
  Sex: Female
  Weight: 31 kg

DRUGS (2)
  1. HALAVEN [Suspect]
     Active Substance: ERIBULIN MESYLATE
     Indication: Invasive ductal breast carcinoma
     Route: 042
     Dates: start: 20230830
  2. HALAVEN [Suspect]
     Active Substance: ERIBULIN MESYLATE
     Indication: Metastatic neoplasm

REACTIONS (1)
  - Platelet count decreased [Unknown]

NARRATIVE: CASE EVENT DATE: 20230902
